FAERS Safety Report 7015477-5 (Version None)
Quarter: 2010Q3

REPORT INFORMATION
  Report Type: 
  Country: None (occurrence: None)
  Receive Date: 20100927
  Receipt Date: 20100916
  Transmission Date: 20110219
  Serious: Yes (Other)
  Sender: FDA-Public Use
  Company Number: CA-JNJFOC-20100906625

PATIENT
  Sex: Female
  Weight: 116 kg

DRUGS (2)
  1. REMICADE [Suspect]
     Indication: RHEUMATOID ARTHRITIS
     Route: 042
  2. REMICADE [Suspect]
     Dosage: INFUSIONS A FEW YEARS AGO
     Route: 042

REACTIONS (2)
  - ARTHRALGIA [None]
  - STRESS [None]
